FAERS Safety Report 5179654-0 (Version None)
Quarter: 2006Q4

REPORT INFORMATION
  Report Type: 
  Country: None (occurrence: None)
  Receive Date: 20061219
  Receipt Date: 20060331
  Transmission Date: 20070319
  Serious: Yes (Life-Threatening)
  Sender: FDA-Public Use
  Company Number: PL-SHR-PL-2006-007682

PATIENT
  Age: 52 Year
  Sex: Female
  Weight: 82 kg

DRUGS (1)
  1. ULTRAVIST 370 [Suspect]
     Dosage: 60 ML, 1 DOSE
     Route: 050
     Dates: start: 20060321, end: 20060321

REACTIONS (2)
  - CONTRAST MEDIA REACTION [None]
  - CORONARY ARTERY DISEASE [None]
